FAERS Safety Report 24771268 (Version 1)
Quarter: 2024Q4

REPORT INFORMATION
  Report Type: Spontaneous
  Country: US (occurrence: US)
  Receive Date: 20241224
  Receipt Date: 20241224
  Transmission Date: 20250114
  Serious: No
  Sender: MSN LABORATORIES PRIVATE LIMITED
  Company Number: US-MSNLABS-2024MSNSPO02704

PATIENT

DRUGS (1)
  1. LEVETIRACETAM [Suspect]
     Active Substance: LEVETIRACETAM
     Indication: Product used for unknown indication
     Route: 065

REACTIONS (14)
  - Skin burning sensation [Unknown]
  - Dysphagia [Unknown]
  - Eye irritation [Unknown]
  - Tongue discomfort [Unknown]
  - Dysphonia [Unknown]
  - Weight decreased [Unknown]
  - Infection [Unknown]
  - Urticaria [Unknown]
  - Oropharyngeal pain [Unknown]
  - Hypersensitivity [Unknown]
  - Insomnia [Unknown]
  - Rash [Unknown]
  - Muscular weakness [Unknown]
  - Malaise [Unknown]
